FAERS Safety Report 15900346 (Version 1)
Quarter: 2019Q1

REPORT INFORMATION
  Report Type: Spontaneous
  Country: US (occurrence: US)
  Receive Date: 20190110
  Receipt Date: 20190110
  Transmission Date: 20190417
  Serious: No
  Sender: FDA-Public Use
  Company Number: None

PATIENT
  Age: 49 Year
  Sex: Female

DRUGS (4)
  1. VERZENIO [Suspect]
     Active Substance: ABEMACICLIB
     Indication: NEOPLASM MALIGNANT
     Route: 048
     Dates: start: 20181214
  2. FASLODEX [Concomitant]
     Active Substance: FULVESTRANT
  3. AMBIEN [Concomitant]
     Active Substance: ZOLPIDEM TARTRATE
  4. METFORMIN [Concomitant]
     Active Substance: METFORMIN HYDROCHLORIDE

REACTIONS (2)
  - Insomnia [None]
  - Diarrhoea [None]

NARRATIVE: CASE EVENT DATE: 20190108
